FAERS Safety Report 7430331-2 (Version None)
Quarter: 2011Q2

REPORT INFORMATION
  Report Type: 
  Country: None (occurrence: None)
  Receive Date: 20110421
  Receipt Date: 20100607
  Transmission Date: 20111010
  Serious: No
  Sender: FDA-Public Use
  Company Number: US-ASTRAZENECA-2010SE26489

PATIENT
  Sex: Female

DRUGS (1)
  1. TOPROL-XL [Suspect]
     Route: 048

REACTIONS (7)
  - FATIGUE [None]
  - OVERDOSE [None]
  - FEELING ABNORMAL [None]
  - DYSPNOEA [None]
  - ANIMAL BITE [None]
  - INSOMNIA [None]
  - MUSCULOSKELETAL STIFFNESS [None]
